FAERS Safety Report 9091548 (Version 1)
Quarter: 2013Q1

REPORT INFORMATION
  Report Type: Spontaneous
  Country: US (occurrence: US)
  Receive Date: 20130131
  Receipt Date: 20130131
  Transmission Date: 20140127
  Serious: Yes (Hospitalization)
  Sender: FDA-Public Use
  Company Number: US-AMGEN-USASP2013004938

PATIENT
  Age: 69 Year
  Sex: Female

DRUGS (1)
  1. PROLIA [Suspect]
     Indication: SENILE OSTEOPOROSIS
     Dosage: UNK UNK, ONE TIME DOSE
     Dates: start: 20120620

REACTIONS (4)
  - Dyspnoea [Unknown]
  - Ascites [Unknown]
  - Cough [Unknown]
  - Dyspnoea exertional [Unknown]
